FAERS Safety Report 5256581-1 (Version None)
Quarter: 2007Q1

REPORT INFORMATION
  Report Type: 
  Country: None (occurrence: None)
  Receive Date: 20070306
  Receipt Date: 20070227
  Transmission Date: 20070707
  Serious: Yes (Other)
  Sender: FDA-Public Use
  Company Number: 2007PK00522

PATIENT
  Sex: Female

DRUGS (1)
  1. SYMBICORT [Suspect]
     Dosage: ONE TO TWO INHALATION PER DAY
     Route: 055
     Dates: start: 20060201

REACTIONS (1)
  - SUTURE RUPTURE [None]
